FAERS Safety Report 10184819 (Version 1)
Quarter: 2014Q2

REPORT INFORMATION
  Report Type: Spontaneous
  Country: GB (occurrence: None)
  Receive Date: 20140519
  Receipt Date: 20140519
  Transmission Date: 20141212
  Serious: Yes (Hospitalization)
  Sender: FDA-Public Use
  Company Number: AUR-APL-2014-05669

PATIENT
  Age: 48 Year
  Sex: Female

DRUGS (4)
  1. FLUOXETINE (FLUOXETINE) [Suspect]
     Indication: PRODUCT USED FOR UNKNOWN INDICATION
  2. CLOZARIL (CLOZAPINE) [Suspect]
     Indication: PRODUCT USED FOR UNKNOWN INDICATION
     Route: 048
     Dates: start: 20120302
  3. HALOPERIDOL (HALOPERIDOL) (HALOPERIDOL) [Suspect]
     Indication: PRODUCT USED FOR UNKNOWN INDICATION
     Dosage: 2 MG (1 MG, 2 IN 1 D)
  4. TRIHEXYPHENIDYL [Suspect]
     Indication: PRODUCT USED FOR UNKNOWN INDICATION
     Dosage: 3 MG (1 MG, 3 IN 1 D)

REACTIONS (5)
  - Leukocytosis [None]
  - Infective exacerbation of chronic obstructive airways disease [None]
  - Neutrophil count increased [None]
  - Differential white blood cell count abnormal [None]
  - White blood cell count increased [None]
